FAERS Safety Report 9775477 (Version 1)
Quarter: 2013Q4

REPORT INFORMATION
  Report Type: Spontaneous
  Country: US (occurrence: US)
  Receive Date: 20131220
  Receipt Date: 20131220
  Transmission Date: 20140711
  Serious: No
  Sender: FDA-Public Use
  Company Number: US-GALDERMA-US13003472

PATIENT
  Age: 61 Year
  Sex: Female

DRUGS (8)
  1. MIRVASO (BRIMONIDINE) TOPICAL GEL, 0.33% [Suspect]
     Indication: ROSACEA
     Dosage: 0.33%
     Route: 061
     Dates: start: 20131015, end: 20131031
  2. METROGEL (METRONIDAZOLE) GEL, 1% [Suspect]
     Indication: ADVERSE EVENT
     Dosage: 1%
     Route: 061
     Dates: start: 20131101, end: 20131101
  3. SULFACET (SODIUM SULFACETAMIDE 10% AND SULFUR 5%) [Concomitant]
     Indication: ROSACEA
     Route: 061
  4. SULFACET (SODIUM SULFACETAMIDE 10% AND SULFUR 5%) [Concomitant]
     Indication: THERAPEUTIC SKIN CARE TOPICAL
  5. CERAVE [Concomitant]
     Indication: THERAPEUTIC SKIN CARE TOPICAL
     Route: 061
  6. MINOCYCLINE [Concomitant]
     Indication: ROSACEA
     Dosage: 100 MG
     Route: 048
  7. XANAX (ALPRAZOLAM) [Concomitant]
     Indication: SLEEP DISORDER
     Dosage: 0.125 MG
     Route: 048
  8. TYLENOL PM (ACETAMINOPHEN AND DIPHENHYDRAMINE) [Concomitant]
     Indication: SLEEP DISORDER
     Route: 048

REACTIONS (14)
  - Condition aggravated [Recovered/Resolved]
  - Abdominal discomfort [Recovered/Resolved]
  - Feeling cold [Not Recovered/Not Resolved]
  - Malaise [Recovered/Resolved]
  - Insomnia [Recovered/Resolved]
  - Feeling hot [Recovered/Resolved]
  - Paraesthesia [Recovered/Resolved]
  - Erythema [Recovered/Resolved]
  - Pain of skin [Recovered/Resolved]
  - Flushing [Recovered/Resolved]
  - Off label use [Recovered/Resolved]
  - Headache [Recovered/Resolved]
  - Drug ineffective for unapproved indication [Recovered/Resolved]
  - Skin burning sensation [Recovered/Resolved]
